FAERS Safety Report 24081634 (Version 1)
Quarter: 2024Q3

REPORT INFORMATION
  Report Type: Spontaneous
  Country: IN (occurrence: IN)
  Receive Date: 20240712
  Receipt Date: 20240712
  Transmission Date: 20241016
  Serious: Yes (Death, Hospitalization)
  Sender: STRIDES
  Company Number: IN-STRIDES ARCOLAB LIMITED-2024SP008282

PATIENT
  Age: 4 Year
  Sex: Female

DRUGS (1)
  1. DISULFIRAM [Suspect]
     Active Substance: DISULFIRAM
     Indication: Product used for unknown indication
     Dosage: UNK, (4-5 TABLETS OF DISULFIRAM?APPROXIMATELY 1-1.25G)
     Route: 048

REACTIONS (13)
  - Death [Fatal]
  - Hypoglycaemia [Recovered/Resolved]
  - Hepatic enzyme increased [Unknown]
  - Toxic encephalopathy [Unknown]
  - Respiratory distress [Unknown]
  - Depressed level of consciousness [Unknown]
  - Musculoskeletal stiffness [Unknown]
  - Dizziness [Unknown]
  - Vomiting [Unknown]
  - Tachycardia [Unknown]
  - Lethargy [Unknown]
  - Accidental overdose [Unknown]
  - Accidental exposure to product by child [Unknown]
